FAERS Safety Report 6437039-0 (Version None)
Quarter: 2009Q4

REPORT INFORMATION
  Report Type: 
  Country: None (occurrence: None)
  Receive Date: 20091112
  Receipt Date: 20091104
  Transmission Date: 20100525
  Serious: Yes (Other)
  Sender: FDA-Public Use
  Company Number: US-JNJFOC-20091102289

PATIENT
  Sex: Female
  Weight: 53.98 kg

DRUGS (5)
  1. FENTANYL TRANSDERMAL SYSTEM [Suspect]
     Indication: PANCREATITIS CHRONIC
     Route: 062
  2. OXYCODONE HCL [Concomitant]
     Indication: PAIN
     Dosage: AS NEEDED
     Route: 048
  3. PHENERGAN HCL [Concomitant]
     Indication: NAUSEA
     Route: 048
  4. LORAZEPAM [Concomitant]
     Dosage: AT NIGHT
     Route: 048
  5. LORAZEPAM [Concomitant]
     Indication: NAUSEA
     Route: 048

REACTIONS (1)
  - DIABETES MELLITUS [None]
